FAERS Safety Report 18052557 (Version 1)
Quarter: 2020Q3

REPORT INFORMATION
  Report Type: Report from Study
  Country: CA (occurrence: CA)
  Receive Date: 20200722
  Receipt Date: 20200722
  Transmission Date: 20201103
  Serious: Yes (Other)
  Sender: FDA-Public Use
  Company Number: CA-CELLTRION INC.-2020CA023951

PATIENT

DRUGS (2)
  1. TRUXIMA [Suspect]
     Active Substance: RITUXIMAB-ABBS
     Dosage: 1000 MG, Q2WEEKS
     Route: 042
     Dates: start: 20200703
  2. TRUXIMA [Suspect]
     Active Substance: RITUXIMAB-ABBS
     Indication: RHEUMATOID ARTHRITIS
     Dosage: 1000 MG, FREQUENCY: Q5WEEKS
     Route: 042
     Dates: start: 20200703

REACTIONS (7)
  - Blood pressure abnormal [Unknown]
  - Product use issue [Unknown]
  - Blood pressure increased [Unknown]
  - Rheumatoid arthritis [Unknown]
  - Loss of personal independence in daily activities [Unknown]
  - Gait disturbance [Unknown]
  - Headache [Unknown]

NARRATIVE: CASE EVENT DATE: 20200703
